FAERS Safety Report 20595571 (Version 4)
Quarter: 2023Q2

REPORT INFORMATION
  Report Type: Other
  Country: US (occurrence: None)
  Receive Date: 20220315
  Receipt Date: 20230411
  Transmission Date: 20230722
  Serious: Yes (Hospitalization)
  Sender: FDA-Public Use
  Company Number: US-ROCHE-2949838

PATIENT
  Sex: Female

DRUGS (4)
  1. OCREVUS [Suspect]
     Active Substance: OCRELIZUMAB
     Indication: Relapsing-remitting multiple sclerosis
     Dosage: DATE OF TREATMENT: 04/APR/2019, 03/OCT/2019, 21/APR/2020, 04/MAY/2020, 13/OCT/2020, 20/APR/2021.
     Route: 042
     Dates: start: 20190318
  2. OCREVUS [Suspect]
     Active Substance: OCRELIZUMAB
     Dosage: PATIENT STATED FULL DOSE BUT DID NOT KNOW WHAT THAT WAS
     Route: 042
     Dates: start: 2019, end: 202104
  3. OCREVUS [Suspect]
     Active Substance: OCRELIZUMAB
     Dosage: 300 MG DAY 1 AND DAY 15 THAN 600 MG EVERY 6 MONTHS
     Route: 042
     Dates: start: 20190328
  4. RITUXAN [Suspect]
     Active Substance: RITUXIMAB
     Indication: Multiple sclerosis
     Route: 065

REACTIONS (4)
  - COVID-19 pneumonia [Recovered/Resolved]
  - Pre-eclampsia [Unknown]
  - Maternal exposure before pregnancy [Unknown]
  - Off label use [Unknown]

NARRATIVE: CASE EVENT DATE: 20220117
